FAERS Safety Report 8162988-5 (Version None)
Quarter: 2012Q1

REPORT INFORMATION
  Report Type: 
  Country: None (occurrence: None)
  Receive Date: 20120224
  Receipt Date: 20111207
  Transmission Date: 20120608
  Serious: No
  Sender: FDA-Public Use
  Company Number: US-GLAXOSMITHKLINE-A0957118A

PATIENT
  Age: 75 Year
  Sex: Male

DRUGS (1)
  1. ARZERRA [Suspect]
     Route: 042
     Dates: start: 20111130

REACTIONS (2)
  - DRUG ADMINISTRATION ERROR [None]
  - UNDERDOSE [None]
